FAERS Safety Report 25180617 (Version 1)
Quarter: 2025Q2

REPORT INFORMATION
  Report Type: Spontaneous
  Country: US (occurrence: US)
  Receive Date: 20250409
  Receipt Date: 20250409
  Transmission Date: 20250716
  Serious: Yes (Other)
  Sender: ALKERMES
  Company Number: US-ALKERMES INC.-ALK-2025-000910

PATIENT
  Age: 55 Year
  Sex: Female

DRUGS (3)
  1. LYBALVI [Suspect]
     Active Substance: OLANZAPINE\SAMIDORPHAN L-MALATE
     Indication: Product used for unknown indication
     Route: 048
  2. UNSPECIFIED INGREDIENT [Suspect]
     Active Substance: UNSPECIFIED INGREDIENT
     Indication: Depression
     Route: 065
  3. UNSPECIFIED INGREDIENT [Concomitant]
     Active Substance: UNSPECIFIED INGREDIENT
     Indication: Product used for unknown indication
     Route: 065

REACTIONS (5)
  - Suicidal ideation [Unknown]
  - Colour blindness [Unknown]
  - Feeling abnormal [Unknown]
  - Dizziness [Unknown]
  - Depression [Unknown]
